FAERS Safety Report 21111943 (Version 1)
Quarter: 2022Q3

REPORT INFORMATION
  Report Type: Spontaneous
  Country: CZ (occurrence: CZ)
  Receive Date: 20220721
  Receipt Date: 20220721
  Transmission Date: 20221027
  Serious: Yes (Other)
  Sender: FDA-Public Use
  Company Number: CZ-FreseniusKabi-FK202209875

PATIENT
  Age: 63 Year
  Sex: Male

DRUGS (4)
  1. LEUCOVORIN CALCIUM [Suspect]
     Active Substance: LEUCOVORIN CALCIUM
     Indication: Rectal adenocarcinoma
     Dosage: MFOLFOX6 ADJUVANT CHEMOTHERAPY
     Dates: start: 201808, end: 201812
  2. OXALIPLATIN [Suspect]
     Active Substance: OXALIPLATIN
     Indication: Rectal adenocarcinoma
     Dosage: MFOLFOX6 ADJUVANT CHEMOTHERAPY
     Dates: start: 201808, end: 201812
  3. CAPECITABINE [Suspect]
     Active Substance: CAPECITABINE
     Indication: Rectal adenocarcinoma
     Dates: start: 201808
  4. FLUOROURACIL [Suspect]
     Active Substance: FLUOROURACIL
     Indication: Rectal adenocarcinoma
     Dosage: MFOLFOX6 ADJUVANT CHEMOTHERAPY
     Dates: start: 201808, end: 201812

REACTIONS (8)
  - Neurotoxicity [Unknown]
  - Neuropathy peripheral [Unknown]
  - Rectal tenesmus [Unknown]
  - Dysuria [Unknown]
  - Haematotoxicity [Unknown]
  - Thrombocytopenia [Unknown]
  - Gastrointestinal toxicity [Unknown]
  - Diarrhoea [Unknown]
